FAERS Safety Report 13873906 (Version 3)
Quarter: 2017Q4

REPORT INFORMATION
  Report Type: Spontaneous
  Country: US (occurrence: US)
  Receive Date: 20170816
  Receipt Date: 20171009
  Transmission Date: 20180320
  Serious: Yes (Other)
  Sender: FDA-Public Use
  Company Number: US-BAYER-2017-155338

PATIENT
  Age: 31 Year
  Sex: Female

DRUGS (1)
  1. MIRENA [Suspect]
     Active Substance: LEVONORGESTREL
     Indication: CONTRACEPTION
     Dosage: 20 MCG/24HR, CONT
     Route: 015
     Dates: start: 2010, end: 20170725

REACTIONS (7)
  - Pregnancy with contraceptive device [None]
  - Scar [None]
  - Embedded device [None]
  - Abortion spontaneous [None]
  - Road traffic accident [None]
  - Drug ineffective [None]
  - Device use issue [None]

NARRATIVE: CASE EVENT DATE: 20170725
